FAERS Safety Report 6496522-2 (Version None)
Quarter: 2009Q4

REPORT INFORMATION
  Report Type: 
  Country: None (occurrence: None)
  Receive Date: 20091214
  Receipt Date: 20090408
  Transmission Date: 20100525
  Serious: Yes (Death, Life-Threatening, Hospitalization, Disabling, Other)
  Sender: FDA-Public Use
  Company Number: GB-SANOFI-AVENTIS-D01200700918

PATIENT
  Age: 86 Year
  Sex: Male
  Weight: 72 kg

DRUGS (9)
  1. CLOPIDOGREL BISULFATE [Suspect]
     Indication: ATRIAL FIBRILLATION
     Dosage: UNIT DOSE: 75 MG
     Route: 048
     Dates: start: 20040722
  2. BLINDED THERAPY [Concomitant]
     Indication: ATRIAL FIBRILLATION
     Dosage: DOSE TEXT: 150 MG/DAY FOR 2 WEEKS FOLLOWING BY 300 MG/DAYUNIT DOSE: 150 MG
     Route: 048
     Dates: start: 20040721
  3. ASPIRIN [Concomitant]
     Indication: ATRIAL FIBRILLATION
     Route: 048
     Dates: start: 20040722
  4. CASODEX [Concomitant]
  5. DOXAZOSIN [Concomitant]
  6. NIASPAN [Concomitant]
  7. LEVOTHYROXINE SODIUM [Concomitant]
  8. OMEPRAZOLE [Concomitant]
  9. LEUPROLIDE ACETATE [Concomitant]

REACTIONS (2)
  - DYSPNOEA [None]
  - HAEMORRHAGE [None]
